FAERS Safety Report 5536799-0 (Version None)
Quarter: 2007Q4

REPORT INFORMATION
  Report Type: 
  Country: None (occurrence: None)
  Receive Date: 20071204
  Receipt Date: 20071127
  Transmission Date: 20080405
  Serious: Yes (Other)
  Sender: FDA-Public Use
  Company Number: 2007SP021329

PATIENT
  Age: 59 Year
  Sex: Male
  Weight: 81 kg

DRUGS (4)
  1. TEMODAL [Suspect]
     Indication: ASTROCYTOMA
     Dosage: 1160 MG; ONCE; PO
     Route: 048
     Dates: start: 20071016, end: 20071016
  2. INEXIUM [Concomitant]
  3. DEPAKINE CHRONO [Concomitant]
  4. SOLUPRED [Concomitant]

REACTIONS (3)
  - ACCIDENTAL OVERDOSE [None]
  - AGRANULOCYTOSIS [None]
  - THROMBOCYTOPENIA [None]
